FAERS Safety Report 26068414 (Version 1)
Quarter: 2025Q4

REPORT INFORMATION
  Report Type: Spontaneous
  Country: EU (occurrence: EU)
  Receive Date: 20251120
  Receipt Date: 20251120
  Transmission Date: 20260119
  Serious: Yes (Other)
  Sender: BOEHRINGER INGELHEIM
  Company Number: EU-BoehringerIngelheim-2025-BI-107447

PATIENT
  Age: 76 Year
  Sex: Female
  Weight: 80 kg

DRUGS (14)
  1. OFEV [Suspect]
     Active Substance: NINTEDANIB
     Indication: Pulmonary fibrosis
     Dosage: 1-0-1?STOP AFTER START OF NERANDOMILAST TREATMENT
     Dates: start: 202411
  2. PREDNISOLONE [Concomitant]
     Active Substance: PREDNISOLONE
  3. METHOTREXATE SODIUM [Concomitant]
     Active Substance: METHOTREXATE SODIUM
     Dosage: S.C. 1X/WEEK
  4. ORENCIA [Concomitant]
     Active Substance: ABATACEPT
     Dosage: S.C. 1X/WEEK
  5. CANDESARTAN [Concomitant]
     Active Substance: CANDESARTAN
     Dosage: 1-0-1
  6. ELIQUIS [Concomitant]
     Active Substance: APIXABAN
     Dosage: 1-0-1
  7. EUTHYROX [Concomitant]
     Active Substance: LEVOTHYROXINE SODIUM
     Dosage: 112 MCG ?1-0-0
  8. ALLOPURINOL [Concomitant]
     Active Substance: ALLOPURINOL
     Dosage: 300 ?0-0-1
  9. PANTOPRAZOLE SODIUM [Concomitant]
     Active Substance: PANTOPRAZOLE SODIUM
     Dosage: 1-0-0
  10. FOLIC ACID [Concomitant]
     Active Substance: FOLIC ACID
     Dosage: SUNDAY, MONDAY, TUESDAY?1-0-0
  11. VITAMINS WITH MINERALS [Concomitant]
     Active Substance: MINERALS\VITAMINS
     Dosage: 0-1-0
  12. Oleovit [Concomitant]
     Dosage: 40 DROPS ONCE WEEKLY
  13. Promakula [Concomitant]
     Dosage: 1-0-1
  14. ABATACEPT [Concomitant]
     Active Substance: ABATACEPT

REACTIONS (3)
  - Pulmonary fibrosis [Unknown]
  - Diarrhoea [Unknown]
  - Nausea [Unknown]

NARRATIVE: CASE EVENT DATE: 20240101
